FAERS Safety Report 4938260-0 (Version None)
Quarter: 2006Q1

REPORT INFORMATION
  Report Type: 
  Country: None (occurrence: None)
  Receive Date: 20060309
  Receipt Date: 20060228
  Transmission Date: 20060701
  Serious: Yes (Other)
  Sender: FDA-Public Use
  Company Number: TW-MERCK-0602USA05959

PATIENT
  Age: 57 Year
  Sex: Male

DRUGS (1)
  1. PEPCID [Suspect]
     Route: 048

REACTIONS (4)
  - BLINDNESS [None]
  - EYE DISORDER [None]
  - RETINOPATHY [None]
  - VISION BLURRED [None]
